FAERS Safety Report 7201765-6 (Version None)
Quarter: 2010Q4

REPORT INFORMATION
  Report Type: 
  Country: None (occurrence: None)
  Receive Date: 20101229
  Receipt Date: 20101221
  Transmission Date: 20110411
  Serious: Yes (Life-Threatening, Hospitalization)
  Sender: FDA-Public Use
  Company Number: GB-ASTRAZENECA-2010SE60196

PATIENT
  Age: 38 Year
  Sex: Male

DRUGS (4)
  1. QUETIAPINE [Suspect]
     Indication: MENTAL DISORDER
     Route: 048
     Dates: start: 20101210, end: 20101210
  2. CITALOPRAM [Concomitant]
  3. PRIADEL [Concomitant]
  4. ZOPICLONE [Concomitant]

REACTIONS (2)
  - DYSPNOEA [None]
  - EPIGLOTTIC OEDEMA [None]
